FAERS Safety Report 7653078-6 (Version None)
Quarter: 2011Q3

REPORT INFORMATION
  Report Type: 
  Country: None (occurrence: None)
  Receive Date: 20110802
  Receipt Date: 20110802
  Transmission Date: 20111222
  Serious: Yes (Hospitalization)
  Sender: FDA-Public Use
  Company Number: None

PATIENT
  Sex: Female
  Weight: 56.7 kg

DRUGS (1)
  1. OPTIRAY 350 [Suspect]
     Indication: ELECTROCARDIOGRAM
     Dosage: 250ML X1 INTRA-ARTERIAL
     Route: 013
     Dates: start: 20110729

REACTIONS (1)
  - ANGIOEDEMA [None]
